FAERS Safety Report 7877784-3 (Version None)
Quarter: 2011Q4

REPORT INFORMATION
  Report Type: 
  Country: None (occurrence: None)
  Receive Date: 20111031
  Receipt Date: 20111031
  Transmission Date: 20120403
  Serious: Yes (Life-Threatening, Hospitalization, Other)
  Sender: FDA-Public Use
  Company Number: None

PATIENT
  Age: 26 Year
  Sex: Female
  Weight: 64.41 kg

DRUGS (1)
  1. GIANVI -GENERIC FOR YAZ- [Suspect]
     Indication: CONTRACEPTION
     Dosage: 3-0.02MG
     Route: 048
     Dates: start: 20100801, end: 20110921

REACTIONS (2)
  - THROMBOSIS [None]
  - PULMONARY EMBOLISM [None]
